FAERS Safety Report 25035486 (Version 1)
Quarter: 2025Q1

REPORT INFORMATION
  Report Type: Spontaneous
  Country: US (occurrence: US)
  Receive Date: 20250304
  Receipt Date: 20250304
  Transmission Date: 20250408
  Serious: Yes (Other)
  Sender: AUROBINDO
  Company Number: US-MLMSERVICE-20250212-PI406937-00184-1

PATIENT
  Age: 28 Year
  Sex: Male

DRUGS (2)
  1. ISOTRETINOIN [Suspect]
     Active Substance: ISOTRETINOIN
     Indication: Acne
     Dosage: 40 MILLIGRAM, ONCE A DAY (IN THE EVENINGS AFTER DINNER)
     Route: 048
  2. VITAMIN D [Concomitant]
     Active Substance: VITAMIN D NOS
     Indication: Product used for unknown indication
     Dosage: 5000 INTERNATIONAL UNIT, EVERY WEEK (OVER THE PAST 6 MONTHS)
     Route: 065

REACTIONS (2)
  - Oesophageal ulcer [Recovered/Resolved]
  - Oesophagitis [Recovered/Resolved]
